FAERS Safety Report 5860171-7 (Version None)
Quarter: 2008Q3

REPORT INFORMATION
  Report Type: 
  Country: None (occurrence: None)
  Receive Date: 20080827
  Receipt Date: 20080813
  Transmission Date: 20090109
  Serious: Yes (Hospitalization)
  Sender: FDA-Public Use
  Company Number: FR-ASTRAZENECA-2008CG01215

PATIENT
  Age: 25237 Day
  Sex: Male

DRUGS (7)
  1. SELOKEN [Suspect]
     Route: 048
  2. MOPRAL [Suspect]
     Route: 048
  3. FRAXIPARINE [Suspect]
     Indication: DIALYSIS
     Route: 013
  4. LASIX [Suspect]
     Route: 048
  5. SEROPRAM [Suspect]
     Route: 048
  6. ASPIRIN [Suspect]
     Route: 048
  7. LESCOL [Suspect]
     Route: 048

REACTIONS (1)
  - INTRAVASCULAR HAEMOLYSIS [None]
